FAERS Safety Report 6594794-7 (Version None)
Quarter: 2010Q1

REPORT INFORMATION
  Report Type: 
  Country: None (occurrence: None)
  Receive Date: 20100222
  Receipt Date: 20100215
  Transmission Date: 20100710
  Serious: Yes (Hospitalization)
  Sender: FDA-Public Use
  Company Number: PHHO2004AU08203

PATIENT
  Sex: Female
  Weight: 87.2 kg

DRUGS (11)
  1. ZOLEDRONIC ACID [Suspect]
     Dosage: UNK, UNK
     Route: 042
     Dates: start: 20040601
  2. CGS 20267 T30748+ [Suspect]
     Indication: BREAST CANCER
     Dosage: 2.5 MG, QD
     Route: 048
     Dates: start: 20040601, end: 20040908
  3. LIPITOR [Concomitant]
  4. COVERSYL [Concomitant]
  5. CITALOPRAM HYDROBROMIDE [Concomitant]
  6. ATENOLOL [Concomitant]
  7. VIOXX [Concomitant]
  8. MULTI-VITAMINS [Concomitant]
  9. METOCLOPRAMIDE [Concomitant]
  10. MORPHINE [Concomitant]
  11. MAGMIN [Concomitant]

REACTIONS (7)
  - FATIGUE [None]
  - LETHARGY [None]
  - PAIN IN EXTREMITY [None]
  - PYREXIA [None]
  - SYSTEMIC INFLAMMATORY RESPONSE SYNDROME [None]
  - URINARY RETENTION [None]
  - URINARY TRACT INFECTION [None]
